FAERS Safety Report 17916823 (Version 1)
Quarter: 2020Q2

REPORT INFORMATION
  Report Type: Spontaneous
  Country: DE (occurrence: DE)
  Receive Date: 20200619
  Receipt Date: 20200619
  Transmission Date: 20200714
  Serious: Yes (Hospitalization)
  Sender: FDA-Public Use
  Company Number: DE-ALLERGAN-2023463US

PATIENT
  Sex: Female

DRUGS (12)
  1. MONTELUKAST [Concomitant]
     Active Substance: MONTELUKAST SODIUM
     Dosage: 10
  2. CALCIUM D3 [Concomitant]
     Active Substance: CALCIUM\CHOLECALCIFEROL
  3. TARGIN [Concomitant]
     Active Substance: NALOXONE HYDROCHLORIDE\OXYCODONE HYDROCHLORIDE
     Dosage: 10/5
  4. ENBREL [Suspect]
     Active Substance: ETANERCEPT
     Indication: RHEUMATOID ARTHRITIS
     Dosage: 50 MG, WEEKLY
     Dates: start: 20160125
  5. VITALUX PLUS [Concomitant]
     Active Substance: VITAMINS
  6. PRETERAX [Concomitant]
     Active Substance: INDAPAMIDE\PERINDOPRIL
     Dosage: 2.5/0.65
  7. NORSPAN [Concomitant]
     Active Substance: BUPRENORPHINE
     Dosage: 10
  8. PREDNISOLONE UNK [Suspect]
     Active Substance: PREDNISOLONE
     Indication: PRODUCT USED FOR UNKNOWN INDICATION
     Dosage: 7.5
  9. BISOPROLOL [Concomitant]
     Active Substance: BISOPROLOL
     Dosage: 5
  10. L-THYROXIN [LEVOTHYROXINE] [Concomitant]
     Active Substance: LEVOTHYROXINE SODIUM
     Dosage: 125
  11. TOREM [Concomitant]
     Active Substance: TORSEMIDE
     Dosage: 10
  12. NOVAMINSULFON [Concomitant]
     Active Substance: METAMIZOLE

REACTIONS (4)
  - Weight bearing difficulty [Not Recovered/Not Resolved]
  - Nodule [Unknown]
  - Rash macular [Not Recovered/Not Resolved]
  - Peripheral swelling [Not Recovered/Not Resolved]
